FAERS Safety Report 20772708 (Version 2)
Quarter: 2022Q2

REPORT INFORMATION
  Report Type: Spontaneous
  Country: FR (occurrence: FR)
  Receive Date: 20220502
  Receipt Date: 20220513
  Transmission Date: 20220720
  Serious: Yes (Hospitalization, Other)
  Sender: FDA-Public Use
  Company Number: None

PATIENT
  Age: 57 Year
  Sex: Female
  Weight: 76.5 kg

DRUGS (13)
  1. ATORVASTATIN [Interacting]
     Active Substance: ATORVASTATIN
     Indication: Hypercholesterolaemia
     Dosage: 20 MG, Q48H
     Route: 048
     Dates: end: 20220219
  2. ATORVASTATIN [Interacting]
     Active Substance: ATORVASTATIN
     Dosage: 80 MG, Q24H (FOLLOWING HOSPITALIZATION FOR SCA ST-, CARDIOLOGISTS INCREASED THE DOSAGE OF ATORVASTAT
     Route: 048
     Dates: start: 20220219, end: 20220406
  3. NEORAL [Interacting]
     Active Substance: CYCLOSPORINE
     Indication: Renal transplant
     Dosage: 75 MG, Q12H (MORNING AND EVENING)
     Route: 065
  4. ALLOPURINOL [Concomitant]
     Active Substance: ALLOPURINOL
     Indication: Product used for unknown indication
     Dosage: 100 MG, Q24H (1 TABLET IN THE MORNING)
     Route: 065
  5. BACTRIM [Concomitant]
     Active Substance: SULFAMETHOXAZOLE\TRIMETHOPRIM
     Indication: Product used for unknown indication
     Dosage: 400 MG, BID (IN THE MORNING, MONDAY/WEDNESDAY/FRIDAY)
     Route: 048
     Dates: start: 20220221
  6. ARANESP [Concomitant]
     Active Substance: DARBEPOETIN ALFA
     Indication: Product used for unknown indication
     Dosage: 60 UG, QW (EVERY FRIDAY)  (SOLUTION INJECTABLE EN STYLO PR?REMPLI)
     Route: 058
     Dates: start: 20220225
  7. PREDNISONE [Concomitant]
     Active Substance: PREDNISONE
     Indication: Complications of transplanted kidney
     Dosage: 5 MG, QD (1 TABLET IN THE MORNING)
     Route: 048
  8. PREDNISONE [Concomitant]
     Active Substance: PREDNISONE
     Indication: Renal transplant
  9. LANSOPRAZOLE [Concomitant]
     Active Substance: LANSOPRAZOLE
     Indication: Product used for unknown indication
     Dosage: 15 MG, Q24H (IN THE EVENING)
     Route: 048
  10. AMLODIPINE BESYLATE [Concomitant]
     Active Substance: AMLODIPINE BESYLATE
     Indication: Hypertension
     Dosage: 5 MG, Q24H (MORNING)
     Route: 065
     Dates: start: 20220219
  11. KARDEGIC [Concomitant]
     Active Substance: ASPIRIN DL-LYSINE
     Indication: Acute coronary syndrome
     Dosage: 75 MG, Q24H (MORNING), SACHET DOSE
     Route: 048
     Dates: start: 20220219
  12. BISOPROLOL [Concomitant]
     Active Substance: BISOPROLOL
     Indication: Product used for unknown indication
     Dosage: 2.5 MG, Q24H (MORNING) (COMPRIM? PELLICUL? S?CABLE)
     Route: 065
     Dates: start: 20220219
  13. TICAGRELOR [Concomitant]
     Active Substance: TICAGRELOR
     Indication: Acute coronary syndrome
     Dosage: 90 MG, Q12H (IN THE MORNING AND EVENING)
     Route: 048
     Dates: start: 20220219

REACTIONS (11)
  - Vomiting [Not Recovered/Not Resolved]
  - Rhabdomyolysis [Recovering/Resolving]
  - Acute kidney injury [Recovering/Resolving]
  - Metabolic acidosis [Recovered/Resolved]
  - Hepatic cytolysis [Recovering/Resolving]
  - Hyperkalaemia [Recovering/Resolving]
  - Incorrect dose administered [Unknown]
  - Hepatocellular injury [Not Recovered/Not Resolved]
  - Hypotension [Not Recovered/Not Resolved]
  - Micturition disorder [Not Recovered/Not Resolved]
  - Constipation [Not Recovered/Not Resolved]

NARRATIVE: CASE EVENT DATE: 20220219
